FAERS Safety Report 13093766 (Version 1)
Quarter: 2017Q1

REPORT INFORMATION
  Report Type: Spontaneous
  Country: GB (occurrence: GB)
  Receive Date: 20170106
  Receipt Date: 20170106
  Transmission Date: 20170428
  Serious: Yes (Life-Threatening, Other)
  Sender: FDA-Public Use
  Company Number: GB-BAYER-2016-247572

PATIENT
  Age: 21 Year
  Sex: Female
  Weight: 78 kg

DRUGS (1)
  1. YASMIN [Suspect]
     Active Substance: DROSPIRENONE\ETHINYL ESTRADIOL
     Indication: POLYCYSTIC OVARIES
     Dosage: UNK
     Route: 048
     Dates: start: 20160920, end: 20161216

REACTIONS (3)
  - Dyspnoea [Unknown]
  - Haemodynamic instability [Unknown]
  - Pulmonary embolism [Recovering/Resolving]

NARRATIVE: CASE EVENT DATE: 20160920
